FAERS Safety Report 7741310-X (Version None)
Quarter: 2011Q3

REPORT INFORMATION
  Report Type: 
  Country: None (occurrence: None)
  Receive Date: 20110909
  Receipt Date: 20110902
  Transmission Date: 20111222
  Serious: Yes (Hospitalization)
  Sender: FDA-Public Use
  Company Number: JP-ABBOTT-11P-087-0845581-00

PATIENT
  Sex: Male

DRUGS (7)
  1. CLARITHROMYCIN [Suspect]
     Indication: COUGH
     Route: 048
  2. REBAMIPIDE [Concomitant]
     Indication: COUGH
     Route: 048
  3. HUSCODE [Concomitant]
     Indication: COUGH
     Route: 048
  4. RESPLEN [Concomitant]
     Indication: COUGH
     Route: 048
  5. MUCODYNE [Suspect]
     Indication: COUGH
     Route: 048
     Dates: start: 20110805
  6. THEOPHYLLINE [Concomitant]
     Indication: COUGH
     Route: 048
  7. EBASTINE [Concomitant]
     Indication: COUGH
     Route: 048

REACTIONS (1)
  - LIVER DISORDER [None]
